FAERS Safety Report 7751575-6 (Version None)
Quarter: 2011Q3

REPORT INFORMATION
  Report Type: 
  Country: None (occurrence: None)
  Receive Date: 20110914
  Receipt Date: 20110909
  Transmission Date: 20111222
  Serious: Yes (Death)
  Sender: FDA-Public Use
  Company Number: PHHY2010JP55560

PATIENT
  Sex: Female
  Weight: 57 kg

DRUGS (12)
  1. PRIMOBOLAN-DEPOT INJ [Concomitant]
     Dosage: 20 MG
     Route: 048
     Dates: start: 20081028
  2. EXJADE [Suspect]
     Indication: IRON OVERLOAD
     Dosage: 100 MG DAILY
     Route: 048
     Dates: start: 20081028, end: 20081110
  3. NORVASC [Concomitant]
     Dosage: 5 MG
     Route: 048
     Dates: start: 20081028
  4. LEVOFLOXACIN [Concomitant]
     Dosage: 300 MG
     Route: 048
     Dates: start: 20081226
  5. FLOMOX [Concomitant]
     Dosage: 300 MG
     Route: 048
     Dates: start: 20081113, end: 20081215
  6. LASIX [Concomitant]
     Dosage: 20 MG
     Route: 048
     Dates: start: 20081028
  7. EXJADE [Suspect]
     Dosage: 1000 MG DAILY
     Route: 048
     Dates: start: 20090106, end: 20090114
  8. EXJADE [Suspect]
     Dosage: 1000 MG DAILY
     Route: 048
     Dates: start: 20081118, end: 20081121
  9. TRANEXAMIC ACID [Concomitant]
     Dosage: 750 MG
     Route: 048
     Dates: start: 20081028
  10. ITRACONAZOLE [Concomitant]
     Dosage: 20 ML
     Route: 048
     Dates: start: 20081028, end: 20081113
  11. FLUCONAZOLE [Concomitant]
     Dosage: 100 MG
     Route: 048
     Dates: start: 20081113, end: 20081215
  12. CIPROFLOXACIN HCL [Concomitant]
     Dosage: 400 MG
     Route: 048
     Dates: start: 20081028, end: 20081113

REACTIONS (5)
  - RASH [None]
  - SENSORY DISTURBANCE [None]
  - PARAESTHESIA [None]
  - PRURITUS [None]
  - SUDDEN DEATH [None]
